FAERS Safety Report 10307836 (Version 5)
Quarter: 2014Q3

REPORT INFORMATION
  Report Type: Spontaneous
  Country: US (occurrence: US)
  Receive Date: 20140716
  Receipt Date: 20140909
  Transmission Date: 20150326
  Serious: Yes (Death)
  Sender: FDA-Public Use
  Company Number: US-PFIZER INC-2014194386

PATIENT
  Age: 76 Year
  Sex: Male

DRUGS (8)
  1. SIMVASTATIN. [Concomitant]
     Active Substance: SIMVASTATIN
     Dosage: UNK
  2. FUROSEMIDE. [Concomitant]
     Active Substance: FUROSEMIDE
     Dosage: UNK
  3. METOLAZONE. [Concomitant]
     Active Substance: METOLAZONE
     Dosage: UNK
  4. CLOPIDOGREL BISULFATE. [Concomitant]
     Active Substance: CLOPIDOGREL BISULFATE
     Dosage: UNK
  5. SUTENT [Suspect]
     Active Substance: SUNITINIB MALATE
     Indication: MALIGNANT URINARY TRACT NEOPLASM
     Dosage: 50 MG, UNK
     Dates: start: 20140626
  6. ISOSORBIDE MONONITRATE EXTENDED RELEASE [Concomitant]
     Active Substance: ISOSORBIDE MONONITRATE
     Dosage: UNK
  7. AMIODARONE HYDROCHLORIDE. [Concomitant]
     Active Substance: AMIODARONE HYDROCHLORIDE
     Dosage: UNK
  8. CYCLOBENZAPRINE HCL [Concomitant]
     Active Substance: CYCLOBENZAPRINE HYDROCHLORIDE
     Dosage: UNK

REACTIONS (2)
  - Vomiting [Unknown]
  - Death [Fatal]

NARRATIVE: CASE EVENT DATE: 2014
